FAERS Safety Report 9072506 (Version 5)
Quarter: 2013Q2

REPORT INFORMATION
  Report Type: Report from Study
  Country: GB (occurrence: GB)
  Receive Date: 20130207
  Receipt Date: 20130424
  Transmission Date: 20140414
  Serious: Yes (Death)
  Sender: FDA-Public Use
  Company Number: GB-US-EMD SERONO, INC.-7192182

PATIENT
  Age: 6 Year
  Sex: Male

DRUGS (3)
  1. SAIZEN [Suspect]
     Indication: GROWTH HORMONE DEFICIENCY
     Route: 058
     Dates: start: 20110628
  2. COLECALCIFENOL (COLECALCIFEROL) [Concomitant]
     Indication: VITAMIN D DEFICIENCY
     Route: 048
     Dates: start: 20121011
  3. SEPTRIN [Concomitant]
     Indication: IMMUNODEFICIENCY
     Route: 048
     Dates: start: 2010

REACTIONS (5)
  - Circulatory collapse [Fatal]
  - Renal failure [Fatal]
  - Vena cava thrombosis [Fatal]
  - Pulmonary embolism [Fatal]
  - Glomerulosclerosis [Fatal]
